FAERS Safety Report 16039308 (Version 4)
Quarter: 2019Q4

REPORT INFORMATION
  Report Type: Spontaneous
  Country: US (occurrence: US)
  Receive Date: 20190306
  Receipt Date: 20191014
  Transmission Date: 20200122
  Serious: No
  Sender: FDA-Public Use
  Company Number: US-MYLANLABS-2019M1017998

PATIENT
  Age: 63 Year
  Sex: Female
  Weight: 61 kg

DRUGS (3)
  1. YUPELRI [Suspect]
     Active Substance: REVEFENACIN
     Indication: CHRONIC OBSTRUCTIVE PULMONARY DISEASE
     Dosage: 175 MICROGRAM, QD
     Route: 055
     Dates: start: 2019, end: 2019
  2. ARCAPTA NEOHALER [Concomitant]
     Active Substance: INDACATEROL MALEATE
     Dosage: UNK
     Dates: start: 2019, end: 201909
  3. YUPELRI [Suspect]
     Active Substance: REVEFENACIN
     Indication: EMPHYSEMA
     Dosage: AT LOWER DOSE
     Route: 055
     Dates: start: 2019

REACTIONS (3)
  - Tongue haemorrhage [Recovered/Resolved]
  - Stomatitis [Recovering/Resolving]
  - Cough [Unknown]

NARRATIVE: CASE EVENT DATE: 2019
